FAERS Safety Report 25364159 (Version 1)
Quarter: 2025Q2

REPORT INFORMATION
  Report Type: Spontaneous
  Country: CN (occurrence: CN)
  Receive Date: 20250527
  Receipt Date: 20250527
  Transmission Date: 20250717
  Serious: Yes (Life-Threatening)
  Sender: GE HEALTHCARE
  Company Number: CN-GE HEALTHCARE-2025CSU006390

PATIENT
  Age: 68 Year
  Sex: Male

DRUGS (1)
  1. OMNISCAN [Suspect]
     Active Substance: GADODIAMIDE
     Indication: Magnetic resonance imaging head
     Route: 042
     Dates: start: 20250514, end: 20250514

REACTIONS (4)
  - Confusional state [Unknown]
  - Restlessness [Unknown]
  - Blood pressure immeasurable [Unknown]
  - Vomiting [Unknown]

NARRATIVE: CASE EVENT DATE: 20250514
